FAERS Safety Report 6742328-6 (Version None)
Quarter: 2010Q2

REPORT INFORMATION
  Report Type: 
  Country: None (occurrence: None)
  Receive Date: 20100526
  Receipt Date: 20100517
  Transmission Date: 20101027
  Serious: Yes (Hospitalization)
  Sender: FDA-Public Use
  Company Number: US-ELI_LILLY_AND_COMPANY-US201005004352

PATIENT
  Sex: Female

DRUGS (22)
  1. GEMCITABINE HYDROCHLORIDE [Suspect]
     Indication: PANCREATIC CARCINOMA
     Dosage: 1590 MG, UNK
     Dates: start: 20090902, end: 20091104
  2. PACLITAXEL [Suspect]
     Indication: PANCREATIC CARCINOMA
     Dosage: 125 MG/M2, UNK
     Dates: start: 20090902, end: 20091104
  3. GLIPIZIDE [Concomitant]
     Indication: DIABETES MELLITUS
     Dosage: 10 MG, UNK
     Route: 048
     Dates: start: 20020101
  4. PIOGLITAZONE [Concomitant]
     Indication: DIABETES MELLITUS
     Dosage: 30 MG, UNK
     Route: 048
     Dates: start: 20090901
  5. SITAGLIPTIN [Concomitant]
     Indication: DIABETES MELLITUS
     Dosage: 100 MG, UNK
     Route: 048
     Dates: start: 20090901
  6. HUMULIN R [Concomitant]
     Indication: DIABETES MELLITUS
     Dates: start: 20090901
  7. OXYCODONE [Concomitant]
     Indication: PAIN
     Dosage: UNK, AS NEEDED
     Route: 048
     Dates: start: 20090825
  8. PROCHLORPERAZINE [Concomitant]
     Indication: NAUSEA
     Dosage: UNK, AS NEEDED
     Route: 048
     Dates: start: 20090829
  9. KYTRIL [Concomitant]
     Indication: NAUSEA
     Dosage: UNK, AS NEEDED
     Route: 048
     Dates: start: 20090825
  10. MEGACE ES [Concomitant]
     Indication: DECREASED APPETITE
     Dosage: 625 MG, UNK
     Route: 048
     Dates: start: 20090825
  11. LEVOTHYROXINE SODIUM [Concomitant]
     Indication: HYPOTHYROIDISM
     Dosage: 25 UG, UNK
     Route: 048
  12. HYZAAR [Concomitant]
     Indication: HYPERTENSION
     Route: 048
  13. OMEPRAZOLE [Concomitant]
     Indication: ULCER
     Dosage: 40 MG, UNK
     Route: 048
     Dates: start: 20090701
  14. PANCRELIPASE [Concomitant]
     Indication: ENZYME SUPPLEMENTATION
     Dosage: 6 D/F, UNK
     Route: 048
     Dates: start: 20090701
  15. MEGESTROL ACETATE [Concomitant]
     Indication: DECREASED APPETITE
     Dosage: 40 MG, UNK
     Route: 048
     Dates: start: 20090601
  16. ROXANOL [Concomitant]
     Indication: PAIN
     Dosage: UNK, AS NEEDED
     Route: 048
     Dates: start: 20090902
  17. DURAGESIC-100 [Concomitant]
     Indication: PAIN
     Dates: start: 20090902
  18. SODIUM BICARBONATE [Concomitant]
     Indication: ULCER
     Dosage: 40 D/F, UNK
     Route: 048
     Dates: start: 20090701
  19. METOCLOPRAMIDE [Concomitant]
     Indication: GASTRIC HYPOMOTILITY
     Dosage: 40 MG, UNK
  20. LISINOPRIL [Concomitant]
     Indication: BLOOD PRESSURE
     Dosage: 10 MG, UNK
     Route: 048
  21. KLONOPIN [Concomitant]
     Indication: DEPRESSION
     Route: 048
  22. FERROUS SULFATE TAB [Concomitant]
     Indication: ANAEMIA
     Dosage: 125 MG, UNK
     Route: 048

REACTIONS (1)
  - PNEUMONIA [None]
